FAERS Safety Report 4449423-5 (Version None)
Quarter: 2004Q3

REPORT INFORMATION
  Report Type: 
  Country: None (occurrence: None)
  Receive Date: 20040908
  Receipt Date: 20040825
  Transmission Date: 20050211
  Serious: Yes (Other)
  Sender: FDA-Public Use
  Company Number: CHPA2004US03271

PATIENT
  Age: 33 Year
  Sex: Female
  Weight: 77.1 kg

DRUGS (11)
  1. TRANSDERM SCOP [Suspect]
     Indication: VERTIGO
     Dosage: 1-2 Q72H TRANSDERMAL
     Route: 062
     Dates: start: 20040401
  2. TRANSDERM SCOP [Suspect]
     Indication: VERTIGO
     Dosage: 1-2 Q72H TRANSDERMAL
     Route: 062
     Dates: start: 20040701
  3. MECLIZINE [Concomitant]
  4. PHENERGAN HCL [Concomitant]
  5. MIDRIN (ISOMETHEPTENE DICHLORALPHENAZONE) [Concomitant]
  6. TOPAMAX [Concomitant]
  7. NEURONTIN [Concomitant]
  8. CELEBREX [Concomitant]
  9. ATIVAN [Concomitant]
  10. NEXIUM [Concomitant]
  11. ASPIRIN [Concomitant]

REACTIONS (9)
  - ABDOMINAL PAIN UPPER [None]
  - BALANCE DISORDER [None]
  - DRUG DEPENDENCE [None]
  - DRUG WITHDRAWAL SYNDROME [None]
  - FEELING ABNORMAL [None]
  - MYDRIASIS [None]
  - VERTIGO [None]
  - VISUAL ACUITY REDUCED TRANSIENTLY [None]
  - VISUAL FIELD DEFECT [None]
